FAERS Safety Report 25893586 (Version 1)
Quarter: 2025Q4

REPORT INFORMATION
  Report Type: Spontaneous
  Country: US (occurrence: US)
  Receive Date: 20251008
  Receipt Date: 20251008
  Transmission Date: 20260118
  Serious: Yes (Death, Other)
  Sender: Kenvue
  Company Number: US-KENVUE-20251000024

PATIENT
  Sex: Male

DRUGS (1)
  1. TYLENOL [Suspect]
     Active Substance: ACETAMINOPHEN
     Indication: Product used for unknown indication
     Dosage: TOOK A LOT
     Route: 065

REACTIONS (2)
  - Renal failure [Fatal]
  - Product use issue [Fatal]
